FAERS Safety Report 11717861 (Version 1)
Quarter: 2015Q4

REPORT INFORMATION
  Report Type: Spontaneous
  Country: US (occurrence: None)
  Receive Date: 20151109
  Receipt Date: 20151109
  Transmission Date: 20160304
  Serious: No
  Sender: FDA-Public Use
  Company Number: None

PATIENT
  Age: 35 Year
  Sex: Female

DRUGS (2)
  1. INFLIXIMAB [Suspect]
     Active Substance: INFLIXIMAB
     Indication: PROCTITIS ULCERATIVE
     Dates: start: 20140109, end: 20140220
  2. INFLIXIMAB [Suspect]
     Active Substance: INFLIXIMAB
     Indication: COLITIS
     Dates: start: 20140109, end: 20140220

REACTIONS (6)
  - Aspartate aminotransferase increased [None]
  - Abdominal pain [None]
  - Alanine aminotransferase increased [None]
  - Diarrhoea [None]
  - Drug-induced liver injury [None]
  - Colitis [None]

NARRATIVE: CASE EVENT DATE: 20140414
